FAERS Safety Report 15539315 (Version 1)
Quarter: 2018Q4

REPORT INFORMATION
  Report Type: Spontaneous
  Country: US (occurrence: US)
  Receive Date: 20181022
  Receipt Date: 20181022
  Transmission Date: 20190205
  Serious: No
  Sender: FDA-Public Use
  Company Number: US-LEXICON PHARMACEUTICALS, INC-18-1606-01236

PATIENT
  Sex: Female

DRUGS (22)
  1. CHOLESTYRAMINE. [Concomitant]
     Active Substance: CHOLESTYRAMINE
  2. NITROSTAT [Concomitant]
     Active Substance: NITROGLYCERIN
  3. TELOTRISTAT ETHYL [Suspect]
     Active Substance: TELOTRISTAT ETHYL
     Indication: CARCINOID TUMOUR OF THE CAECUM
     Route: 048
     Dates: start: 20170626
  4. FENTANYL. [Concomitant]
     Active Substance: FENTANYL
  5. PEPCID [Concomitant]
     Active Substance: FAMOTIDINE
  6. POTASSIUM CHLORIDE. [Concomitant]
     Active Substance: POTASSIUM CHLORIDE
  7. SANDOSTATIN [Concomitant]
     Active Substance: OCTREOTIDE ACETATE
  8. ASPIRIN. [Concomitant]
     Active Substance: ASPIRIN
  9. MULTIVITAMIN [Concomitant]
     Active Substance: VITAMINS
  10. PREDNISONE. [Concomitant]
     Active Substance: PREDNISONE
  11. IRON [Concomitant]
     Active Substance: IRON
  12. LASIX [Concomitant]
     Active Substance: FUROSEMIDE
  13. METHOTREXATE. [Concomitant]
     Active Substance: METHOTREXATE
  14. NABUMETONE. [Concomitant]
     Active Substance: NABUMETONE
  15. TENORMIN [Concomitant]
     Active Substance: ATENOLOL
  16. NORCO [Concomitant]
     Active Substance: ACETAMINOPHEN\HYDROCODONE BITARTRATE
  17. ATORVASTATIN [Concomitant]
     Active Substance: ATORVASTATIN
  18. CALCIUM CARBONATE. [Concomitant]
     Active Substance: CALCIUM CARBONATE
  19. LIDOCAINE. [Concomitant]
     Active Substance: LIDOCAINE
  20. FLEXERIL [Concomitant]
     Active Substance: CYCLOBENZAPRINE HYDROCHLORIDE
  21. REQUIP [Concomitant]
     Active Substance: ROPINIROLE HYDROCHLORIDE
  22. COUMADIN [Concomitant]
     Active Substance: WARFARIN SODIUM

REACTIONS (1)
  - Localised infection [Unknown]
